FAERS Safety Report 6660105-1 (Version None)
Quarter: 2010Q1

REPORT INFORMATION
  Report Type: 
  Country: None (occurrence: None)
  Receive Date: 20100331
  Receipt Date: 20100310
  Transmission Date: 20100710
  Serious: No
  Sender: FDA-Public Use
  Company Number: 2008BI027741

PATIENT
  Sex: Male

DRUGS (1)
  1. TYSABRI [Suspect]
     Indication: MULTIPLE SCLEROSIS
     Route: 042
     Dates: start: 20080605

REACTIONS (12)
  - ABNORMAL DREAMS [None]
  - ARTHRALGIA [None]
  - ASTHENIA [None]
  - CENTRAL NERVOUS SYSTEM LESION [None]
  - DIARRHOEA [None]
  - ENERGY INCREASED [None]
  - FATIGUE [None]
  - FEELING COLD [None]
  - HYPERHIDROSIS [None]
  - POOR QUALITY SLEEP [None]
  - RHINORRHOEA [None]
  - SLEEP DISORDER [None]
